FAERS Safety Report 6160765-8 (Version None)
Quarter: 2009Q2

REPORT INFORMATION
  Report Type: 
  Country: None (occurrence: None)
  Receive Date: 20090420
  Receipt Date: 20090406
  Transmission Date: 20091009
  Serious: Yes (Death)
  Sender: FDA-Public Use
  Company Number: US-TYCO HEALTHCARE/MALLINCKRODT-T200600923

PATIENT
  Sex: Male

DRUGS (8)
  1. METHADONE HCL [Suspect]
     Indication: BACK PAIN
     Dosage: 1 - 2 TABS, TID PRN
  2. DURAGESIC-100 [Concomitant]
     Indication: BACK PAIN
     Dosage: UNK MG, UNK
     Route: 062
  3. DEMEROL [Concomitant]
     Indication: BACK PAIN
     Dosage: 50 MG, UNK
  4. PERCOCET [Concomitant]
     Indication: BACK PAIN
     Dosage: 1-2 TABS, BID
  5. VALIUM [Concomitant]
     Indication: BACK PAIN
  6. THORACIC EPIDURAL STEROID INJECTION [Concomitant]
     Indication: BACK PAIN
     Dosage: UNK
     Route: 008
     Dates: start: 20060421, end: 20060421
  7. THORACIC EPIDURAL STEROID INJECTION [Concomitant]
     Dosage: UNK
     Route: 008
     Dates: start: 20060510, end: 20060510
  8. THORACIC EPIDURAL STEROID INJECTION [Concomitant]
     Dosage: UNK
     Route: 008
     Dates: start: 20060609, end: 20060609

REACTIONS (1)
  - DRUG TOXICITY [None]
